FAERS Safety Report 21940394 (Version 1)
Quarter: 2023Q1

REPORT INFORMATION
  Report Type: Spontaneous
  Country: JP (occurrence: JP)
  Receive Date: 20230201
  Receipt Date: 20230201
  Transmission Date: 20230417
  Serious: No
  Sender: FDA-Public Use
  Company Number: JP-TAKEDA-2022TJP040279

PATIENT
  Age: 65 Year
  Sex: Male
  Weight: 76 kg

DRUGS (8)
  1. CABOMETYX [Suspect]
     Active Substance: CABOZANTINIB S-MALATE
     Indication: Hepatocellular carcinoma
     Dosage: 40 MG, QD
     Route: 048
     Dates: start: 20220314
  2. SAMSCA [Concomitant]
     Active Substance: TOLVAPTAN
     Dosage: 3.7 MG, QD
     Route: 048
     Dates: start: 20211222
  3. TELMISARTAN [Concomitant]
     Active Substance: TELMISARTAN
     Dosage: 40 MG, QD
     Route: 048
     Dates: start: 20200910
  4. AMINO ACIDS, SOURCE UNSPECIFIED [Concomitant]
     Active Substance: AMINO ACIDS, SOURCE UNSPECIFIED
     Dosage: 4.15 G, TID
     Route: 048
     Dates: start: 20201109
  5. URSODIOL [Concomitant]
     Active Substance: URSODIOL
     Dosage: 200 MG, TID
     Route: 048
     Dates: start: 2019
  6. AZOSEMIDE [Concomitant]
     Active Substance: AZOSEMIDE
     Dosage: 30 MG, QD
     Route: 048
     Dates: start: 2019
  7. ESAXERENONE [Concomitant]
     Active Substance: ESAXERENONE
     Dosage: 2.5 MG, QD
     Route: 048
     Dates: start: 20211220
  8. VEMLIDY [Concomitant]
     Active Substance: TENOFOVIR ALAFENAMIDE FUMARATE
     Dosage: 25 MG, QD
     Route: 048
     Dates: start: 20211220

REACTIONS (1)
  - Dental alveolar anomaly [Recovered/Resolved]

NARRATIVE: CASE EVENT DATE: 20220322
